FAERS Safety Report 20376945 (Version 2)
Quarter: 2022Q1

REPORT INFORMATION
  Report Type: Report from Study
  Country: TR (occurrence: TR)
  Receive Date: 20220125
  Receipt Date: 20220202
  Transmission Date: 20220423
  Serious: Yes (Other)
  Sender: FDA-Public Use
  Company Number: TR-BRISTOL-MYERS SQUIBB COMPANY-BMS-2022-010588

PATIENT
  Age: 59 Year
  Sex: Male
  Weight: 78.9 kg

DRUGS (3)
  1. NIVOLUMAB [Suspect]
     Active Substance: NIVOLUMAB
     Indication: Transitional cell cancer of renal pelvis and ureter metastatic
     Dosage: 360 MILLIGRAM
     Route: 042
     Dates: start: 20211215
  2. GEMCITABINE HYDROCHLORIDE [Suspect]
     Active Substance: GEMCITABINE HYDROCHLORIDE
     Indication: Transitional cell cancer of renal pelvis and ureter metastatic
     Dosage: 1000 MILLIGRAM/SQ. METER (1800 MG)
     Route: 042
     Dates: start: 20211215
  3. CISPLATIN [Suspect]
     Active Substance: CISPLATIN
     Indication: Transitional cell cancer of renal pelvis and ureter metastatic
     Dosage: 70 MILLIGRAM/SQ. METER (130 MG)
     Route: 042
     Dates: start: 20211215

REACTIONS (1)
  - Neutropenia [Recovered/Resolved]

NARRATIVE: CASE EVENT DATE: 20220103
